FAERS Safety Report 25170130 (Version 1)
Quarter: 2025Q2

REPORT INFORMATION
  Report Type: Spontaneous
  Country: BR (occurrence: BR)
  Receive Date: 20250407
  Receipt Date: 20250407
  Transmission Date: 20250717
  Serious: Yes (Hospitalization, Other)
  Sender: BEIGENE
  Company Number: BR-BEIGENE-BGN-2025-005407

PATIENT

DRUGS (2)
  1. BRUKINSA [Suspect]
     Active Substance: ZANUBRUTINIB
     Indication: Waldenstrom^s macroglobulinaemia
     Route: 065
  2. BRUKINSA [Suspect]
     Active Substance: ZANUBRUTINIB
     Dosage: 2 TIMES A DAY
     Route: 065

REACTIONS (2)
  - Liver disorder [Unknown]
  - Cytopenia [Unknown]
